FAERS Safety Report 10685473 (Version 2)
Quarter: 2015Q1

REPORT INFORMATION
  Report Type: Spontaneous
  Country: US (occurrence: US)
  Receive Date: 20141231
  Receipt Date: 20150115
  Transmission Date: 20150720
  Serious: Yes (Other)
  Sender: FDA-Public Use
  Company Number: US-PFIZER INC-2014359246

PATIENT
  Sex: Female

DRUGS (3)
  1. FUROSEMIDE. [Concomitant]
     Active Substance: FUROSEMIDE
     Indication: FLUID RETENTION
  2. MINOXIDIL. [Suspect]
     Active Substance: MINOXIDIL
     Dosage: 0.6 MG/KG, DAILY
     Route: 048
  3. MINOXIDIL. [Suspect]
     Active Substance: MINOXIDIL
     Indication: ESSENTIAL HYPERTENSION
     Dosage: 0.15 MG/KG, DAILY
     Route: 048

REACTIONS (1)
  - Decreased appetite [Recovered/Resolved]
